FAERS Safety Report 5209977-8 (Version None)
Quarter: 2006Q4

REPORT INFORMATION
  Report Type: 
  Country: None (occurrence: None)
  Receive Date: 20061128
  Receipt Date: 20051227
  Transmission Date: 20070319
  Serious: Yes (Other)
  Sender: FDA-Public Use
  Company Number: 2005078689

PATIENT
  Age: 67 Year
  Sex: Male
  Weight: 85.2762 kg

DRUGS (7)
  1. TIKOSYN [Suspect]
     Indication: ATRIAL FIBRILLATION
     Dosage: SEE IMAGE
     Route: 048
     Dates: start: 20050103, end: 20050201
  2. TIKOSYN [Suspect]
     Indication: HEART RATE INCREASED
     Dosage: SEE IMAGE
     Route: 048
     Dates: start: 20050103, end: 20050201
  3. TIKOSYN [Suspect]
     Indication: ATRIAL FIBRILLATION
     Dosage: SEE IMAGE
     Route: 048
     Dates: start: 20050201
  4. TIKOSYN [Suspect]
     Indication: HEART RATE INCREASED
     Dosage: SEE IMAGE
     Route: 048
     Dates: start: 20050201
  5. TOPROL-XL [Concomitant]
  6. COUMADIN [Concomitant]
  7. DIGOXIN [Concomitant]

REACTIONS (5)
  - ATRIAL FIBRILLATION [None]
  - INCORRECT DOSE ADMINISTERED [None]
  - NAUSEA [None]
  - PHOTOSENSITIVITY REACTION [None]
  - VOMITING [None]
